FAERS Safety Report 9473146 (Version 1)
Quarter: 2013Q3

REPORT INFORMATION
  Report Type: Spontaneous
  Country: US (occurrence: US)
  Receive Date: 20130823
  Receipt Date: 20130823
  Transmission Date: 20140515
  Serious: No
  Sender: FDA-Public Use
  Company Number: US-BRISTOL-MYERS SQUIBB COMPANY-17482506

PATIENT
  Age: 40 Year
  Sex: Female

DRUGS (1)
  1. SPRYCEL (CML) TABS 50 MG [Suspect]
     Dosage: 4 PILLS A DAY FOR 1 +1/2 YEARS. FOR THE LAST 6 MONTHS 50 MG 2 TABLETS DAILY 5 DAYS A WEEK.

REACTIONS (1)
  - Fatigue [Unknown]
